FAERS Safety Report 11767745 (Version 1)
Quarter: 2015Q4

REPORT INFORMATION
  Report Type: Spontaneous
  Country: US (occurrence: None)
  Receive Date: 20151120
  Receipt Date: 20151120
  Transmission Date: 20160304
  Serious: No
  Sender: FDA-Public Use
  Company Number: None

PATIENT
  Age: 83 Year
  Sex: Male
  Weight: 102.5 kg

DRUGS (1)
  1. ROFLUMILAST [Suspect]
     Active Substance: ROFLUMILAST
     Indication: CHRONIC OBSTRUCTIVE PULMONARY DISEASE
     Dosage: MCG PO
     Route: 048
     Dates: start: 20151020, end: 20151110

REACTIONS (4)
  - Diarrhoea [None]
  - Dyspepsia [None]
  - Flatulence [None]
  - Decreased appetite [None]

NARRATIVE: CASE EVENT DATE: 20151110
